FAERS Safety Report 4354645-8 (Version None)
Quarter: 2004Q2

REPORT INFORMATION
  Report Type: 
  Country: None (occurrence: None)
  Receive Date: 20040506
  Receipt Date: 20040506
  Transmission Date: 20050107
  Serious: Yes (Death)
  Sender: FDA-Public Use
  Company Number: None

PATIENT
  Sex: Male
  Weight: 70 kg

DRUGS (3)
  1. LOVENOX [Suspect]
     Indication: MYOCARDIAL INFARCTION
     Dosage: 60 MG BID SC
     Route: 058
     Dates: start: 20040211, end: 20040212
  2. PLAVIX [Suspect]
     Indication: CEREBROVASCULAR ACCIDENT
     Dosage: 75 MG DAILY ORAL
     Route: 048
     Dates: start: 20040210, end: 20040212
  3. ECOTRIN [Concomitant]

REACTIONS (3)
  - MYOCARDIAL INFARCTION [None]
  - SUBDURAL HAEMATOMA [None]
  - VENTRICULAR TACHYCARDIA [None]
